FAERS Safety Report 9242947 (Version 1)
Quarter: 2013Q2

REPORT INFORMATION
  Report Type: Spontaneous
  Country: US (occurrence: US)
  Receive Date: 20130419
  Receipt Date: 20130419
  Transmission Date: 20140414
  Serious: Yes (Hospitalization)
  Sender: FDA-Public Use
  Company Number: US-B.I. PHARMACEUTICALS,INC./RIDGEFIELD-2013-BI-10053BP

PATIENT
  Sex: Female

DRUGS (2)
  1. PRADAXA [Suspect]
     Indication: ATRIAL FIBRILLATION
     Dosage: 300 MG
     Route: 048
     Dates: start: 2010
  2. CARVEDILOL [Concomitant]
     Route: 048

REACTIONS (5)
  - Carotid artery occlusion [Recovered/Resolved]
  - Head injury [Recovered/Resolved with Sequelae]
  - Fall [Recovered/Resolved]
  - Laceration [Recovered/Resolved]
  - Blood pressure decreased [Not Recovered/Not Resolved]
